FAERS Safety Report 5918408-1 (Version None)
Quarter: 2008Q4

REPORT INFORMATION
  Report Type: 
  Country: None (occurrence: None)
  Receive Date: 20081010
  Receipt Date: 20080930
  Transmission Date: 20090506
  Serious: Yes (Hospitalization)
  Sender: FDA-Public Use
  Company Number: 093008-2

PATIENT
  Age: 74 Year
  Sex: Female

DRUGS (4)
  1. HYASON (150 IU HYALURONIDASE) ORGANON [Suspect]
     Indication: ANAESTHESIA PROCEDURE
     Dosage: 150 IU INJECTION 055
     Route: 015
  2. LIDOCAINE [Concomitant]
  3. BUPIVACAINE [Concomitant]
  4. EPINEPHRINE [Concomitant]

REACTIONS (7)
  - CONJUNCTIVAL OEDEMA [None]
  - DRUG HYPERSENSITIVITY [None]
  - EYE MOVEMENT DISORDER [None]
  - EYELID OEDEMA [None]
  - PAROPHTHALMIA [None]
  - SURGICAL PROCEDURE REPEATED [None]
  - VISUAL ACUITY REDUCED [None]
